FAERS Safety Report 8263857-2 (Version None)
Quarter: 2012Q2

REPORT INFORMATION
  Report Type: 
  Country: None (occurrence: None)
  Receive Date: 20120405
  Receipt Date: 20120328
  Transmission Date: 20120825
  Serious: Yes (Hospitalization, Disabling, Other)
  Sender: FDA-Public Use
  Company Number: US-MERCK-1201USA01159

PATIENT
  Age: 61 Year
  Sex: Female

DRUGS (8)
  1. FOSAMAX PLUS D [Suspect]
     Indication: OSTEOPENIA
     Route: 048
     Dates: start: 20060301, end: 20070507
  2. FOSAMAX PLUS D [Suspect]
     Indication: OSTEOPOROSIS
     Route: 048
     Dates: start: 20060301, end: 20070507
  3. ALENDRONATE SODIUM [Suspect]
     Indication: OSTEOPOROSIS
     Route: 048
     Dates: start: 20090801, end: 20100101
  4. FOSAMAX [Suspect]
     Indication: OSTEOPOROSIS
     Route: 048
     Dates: start: 19980401, end: 20001101
  5. FOSAMAX [Suspect]
     Indication: OSTEOPENIA
     Route: 048
     Dates: start: 19980401, end: 20001101
  6. FOSAMAX [Suspect]
     Route: 048
     Dates: start: 20010101, end: 20080101
  7. ALENDRONATE SODIUM [Suspect]
     Indication: OSTEOPENIA
     Route: 048
     Dates: start: 20090801, end: 20100101
  8. FOSAMAX [Suspect]
     Route: 048
     Dates: start: 20010101, end: 20080101

REACTIONS (24)
  - BALANCE DISORDER [None]
  - MUSCLE SPASMS [None]
  - URTICARIA [None]
  - SPINAL OSTEOARTHRITIS [None]
  - TINNITUS [None]
  - NEUROPATHY PERIPHERAL [None]
  - IMPAIRED HEALING [None]
  - FOOT FRACTURE [None]
  - TOOTH EXTRACTION [None]
  - CHOLECYSTITIS [None]
  - TOOTH DISORDER [None]
  - PERNICIOUS ANAEMIA [None]
  - CERUMEN IMPACTION [None]
  - NASOPHARYNGITIS [None]
  - ROAD TRAFFIC ACCIDENT [None]
  - INSOMNIA [None]
  - PARATHYROID DISORDER [None]
  - COLON ADENOMA [None]
  - FEMUR FRACTURE [None]
  - FALL [None]
  - BONE DISORDER [None]
  - LOW TURNOVER OSTEOPATHY [None]
  - INTERVERTEBRAL DISC DEGENERATION [None]
  - CERVICAL SPINAL STENOSIS [None]
